FAERS Safety Report 6656314-8 (Version None)
Quarter: 2010Q1

REPORT INFORMATION
  Report Type: 
  Country: None (occurrence: None)
  Receive Date: 20100329
  Receipt Date: 20100322
  Transmission Date: 20100710
  Serious: Yes (Other)
  Sender: FDA-Public Use
  Company Number: GB-BRISTOL-MYERS SQUIBB COMPANY-14899835

PATIENT
  Age: 53 Year
  Sex: Male
  Weight: 98 kg

DRUGS (7)
  1. SUSTIVA [Suspect]
     Indication: ANTIRETROVIRAL THERAPY
  2. REYATAZ [Suspect]
     Indication: ANTIRETROVIRAL THERAPY
  3. ATRIPLA [Suspect]
     Indication: ANTIRETROVIRAL THERAPY
     Dosage: ATRIPLA (EFAVIRENZ600MG +EMTRICITABINE 200MG + TENOFOVIR DISOPROXIL 245MG)
  4. ABACAVIR [Suspect]
     Indication: ANTIRETROVIRAL THERAPY
  5. RITONAVIR [Suspect]
     Indication: ANTIRETROVIRAL THERAPY
  6. KALETRA [Suspect]
     Indication: ANTIRETROVIRAL THERAPY
  7. KIVEXA [Suspect]
     Indication: ANTIRETROVIRAL THERAPY
     Dosage: 1 DF= 600MG+ 300MG

REACTIONS (3)
  - ABNORMAL DREAMS [None]
  - DIARRHOEA [None]
  - MYOCARDIAL INFARCTION [None]
